FAERS Safety Report 7572042-9 (Version None)
Quarter: 2011Q2

REPORT INFORMATION
  Report Type: 
  Country: None (occurrence: None)
  Receive Date: 20110624
  Receipt Date: 20110610
  Transmission Date: 20111010
  Serious: Yes (Other)
  Sender: FDA-Public Use
  Company Number: GB-JNJFOC-20110605845

PATIENT
  Sex: Female

DRUGS (1)
  1. SUDAFED DECONGESTANT [Suspect]
     Indication: PRODUCT USED FOR UNKNOWN INDICATION
     Dosage: 30MG/5ML, 10 ML DOSE DAILY
     Route: 048

REACTIONS (1)
  - DEPENDENCE [None]
